FAERS Safety Report 13745185 (Version 4)
Quarter: 2017Q4

REPORT INFORMATION
  Report Type: Spontaneous
  Country: JP (occurrence: JP)
  Receive Date: 20170712
  Receipt Date: 20171005
  Transmission Date: 20180320
  Serious: Yes (Hospitalization, Disabling, Other)
  Sender: FDA-Public Use
  Company Number: JP-AMGEN-JPNSP2017103083

PATIENT
  Age: 77 Year
  Sex: Male
  Weight: 49 kg

DRUGS (11)
  1. PREDONINE [Suspect]
     Active Substance: PREDNISOLONE
     Indication: METASTASES TO BONE
     Dosage: 5 MG, BID
     Route: 048
  2. DENOTAS [Concomitant]
     Active Substance: CALCIUM CARBONATE\CHOLECALCIFEROL\MAGNESIUM CARBONATE
     Dosage: 1 DF, BID
     Route: 065
  3. LOXOMARIN [Concomitant]
     Active Substance: LOXOPROFEN
     Dosage: 60 MG, AS NEEDED
     Route: 065
     Dates: start: 20170620
  4. DICLOFENAC SODIUM ER [Concomitant]
     Active Substance: DICLOFENAC SODIUM
     Dosage: 50 MG, QD
     Route: 065
     Dates: start: 20170628
  5. CEFCAPENE PIVOXIL HYDROCHLORIDE [Concomitant]
     Active Substance: CEFCAPENE PIVOXIL HYDROCHLORIDE
     Dosage: 300 MG, QD
     Route: 065
     Dates: start: 20170623, end: 20170626
  6. ZOMETA [Suspect]
     Active Substance: ZOLEDRONIC ACID
     Indication: METASTASES TO BONE
     Dosage: UNK
     Route: 042
     Dates: start: 201501, end: 201611
  7. ZYTIGA [Concomitant]
     Active Substance: ABIRATERONE ACETATE
     Dosage: 250 MG, QID
     Route: 048
     Dates: start: 20161228
  8. MAGMITT [Concomitant]
     Active Substance: MAGNESIUM OXIDE
     Dosage: 330 MG, QID
     Route: 048
  9. LOXOMARIN [Concomitant]
     Active Substance: LOXOPROFEN
     Dosage: 60 MG, BID
     Route: 065
  10. ENSURE [Concomitant]
     Active Substance: AMINO ACIDS\DEXTROSE\ELECTROLYTES NOS\SOYBEAN OIL\VITAMINS
     Dosage: 750 ML, QD
     Route: 065
     Dates: start: 20170623, end: 20170625
  11. RANMARK [Suspect]
     Active Substance: DENOSUMAB
     Indication: METASTASES TO BONE
     Dosage: 120 MG, Q3MO
     Route: 058
     Dates: start: 20151127

REACTIONS (3)
  - Cellulitis [Recovered/Resolved]
  - Osteomyelitis [Recovered/Resolved with Sequelae]
  - Inappropriate schedule of drug administration [Unknown]

NARRATIVE: CASE EVENT DATE: 20170618
